FAERS Safety Report 6300317-X (Version None)
Quarter: 2009Q3

REPORT INFORMATION
  Report Type: 
  Country: None (occurrence: None)
  Receive Date: 20090803
  Receipt Date: 20090721
  Transmission Date: 20100115
  Serious: Yes (Other)
  Sender: FDA-Public Use
  Company Number: 8029579

PATIENT
  Age: 25 Year
  Sex: Female

DRUGS (1)
  1. KEPPRA [Suspect]
     Dosage: 750 MG 2/D; PO
     Route: 048

REACTIONS (3)
  - ABORTION SPONTANEOUS [None]
  - PREMATURE LABOUR [None]
  - TREATMENT NONCOMPLIANCE [None]
